FAERS Safety Report 5926674-1 (Version None)
Quarter: 2008Q4

REPORT INFORMATION
  Report Type: 
  Country: None (occurrence: None)
  Receive Date: 20081022
  Receipt Date: 20081017
  Transmission Date: 20090506
  Serious: Yes (Hospitalization, Other)
  Sender: FDA-Public Use
  Company Number: DE-AVENTIS-200812689DE

PATIENT
  Age: 63 Year
  Sex: Female
  Weight: 87.5 kg

DRUGS (5)
  1. ARAVA [Suspect]
     Indication: RHEUMATOID ARTHRITIS
     Route: 048
     Dates: start: 20080101, end: 20080818
  2. ARAVA [Suspect]
     Route: 048
     Dates: start: 20080818, end: 20080830
  3. DECORTIN [Concomitant]
     Indication: RHEUMATOID ARTHRITIS
     Route: 048
  4. PANTOZOL                           /01263202/ [Concomitant]
     Route: 048
  5. KATADOLON [Concomitant]
     Dosage: DOSE: NOT REPROTED
     Dates: start: 20080701, end: 20080801

REACTIONS (5)
  - ASTHENIA [None]
  - DIARRHOEA [None]
  - FATIGUE [None]
  - HEPATOTOXICITY [None]
  - LIVER FUNCTION TEST ABNORMAL [None]
